FAERS Safety Report 10983323 (Version 1)
Quarter: 2015Q2

REPORT INFORMATION
  Report Type: Report from Study
  Country: AU (occurrence: AU)
  Receive Date: 20150403
  Receipt Date: 20150403
  Transmission Date: 20150821
  Serious: Yes (Hospitalization, Other)
  Sender: FDA-Public Use
  Company Number: AU-ABBVIE-15P-008-1368510-00

PATIENT
  Age: 74 Year
  Sex: Female

DRUGS (4)
  1. DUODOPA [Suspect]
     Active Substance: CARBIDOPA\LEVODOPA
     Indication: PRODUCT USED FOR UNKNOWN INDICATION
     Dosage: 11ML MORNING DOSE AND 4ML/HR
     Route: 050
     Dates: start: 20150319
  2. FLORINEF ACETATE [Concomitant]
     Active Substance: FLUDROCORTISONE ACETATE
     Indication: PRODUCT USED FOR UNKNOWN INDICATION
  3. DUODOPA [Suspect]
     Active Substance: CARBIDOPA\LEVODOPA
     Dosage: 3.7ML/HR
     Route: 050
     Dates: start: 201503
  4. MOTILIUM [Concomitant]
     Active Substance: DOMPERIDONE
     Indication: PRODUCT USED FOR UNKNOWN INDICATION
     Dosage: TDS

REACTIONS (12)
  - Freezing phenomenon [Unknown]
  - Vomiting [Unknown]
  - Hallucination, visual [Not Recovered/Not Resolved]
  - Dehydration [Unknown]
  - Hyperhidrosis [Unknown]
  - Blood pressure fluctuation [Unknown]
  - Confusional state [Not Recovered/Not Resolved]
  - Urine output decreased [Unknown]
  - Renal impairment [Unknown]
  - Cardio-respiratory arrest [Unknown]
  - Circulatory collapse [Unknown]
  - Seizure [Unknown]

NARRATIVE: CASE EVENT DATE: 201503
